FAERS Safety Report 19139600 (Version 1)
Quarter: 2021Q2

REPORT INFORMATION
  Report Type: Spontaneous
  Country: CA (occurrence: CA)
  Receive Date: 20210415
  Receipt Date: 20210415
  Transmission Date: 20210717
  Serious: Yes (Life-Threatening, Hospitalization)
  Sender: FDA-Public Use
  Company Number: CA-PFIZER INC-2021382123

PATIENT
  Age: 8 Year
  Sex: Male

DRUGS (5)
  1. CISPLATIN. [Suspect]
     Active Substance: CISPLATIN
     Dosage: 78 MG, SINGLE
     Route: 042
  2. CYCLOPHOSPHAMIDE. [Suspect]
     Active Substance: CYCLOPHOSPHAMIDE
     Dosage: 1560 MG
     Route: 042
  3. FOLIC ACID. [Concomitant]
     Active Substance: FOLIC ACID
  4. VINCRISTINE SULFATE. [Suspect]
     Active Substance: VINCRISTINE SULFATE
     Dosage: 1.05 MG, SINGLE
     Route: 042
  5. VINCRISTINE SULFATE. [Suspect]
     Active Substance: VINCRISTINE SULFATE
     Dosage: 1.05 MG, SINGLE
     Route: 042

REACTIONS (3)
  - Febrile neutropenia [Unknown]
  - Pyrexia [Unknown]
  - Fatigue [Unknown]
